FAERS Safety Report 8861608 (Version 1)
Quarter: 2012Q4

REPORT INFORMATION
  Report Type: 
  Country: US (occurrence: US)
  Receive Date: 20121025
  Receipt Date: 20121025
  Transmission Date: 20130627
  Serious: No
  Sender: FDA-Public Use
  Company Number: US-AMGEN-USASP2012018068

PATIENT
  Age: 55 Year
  Sex: Female
  Weight: 55.33 kg

DRUGS (9)
  1. ENBREL [Suspect]
     Indication: PRODUCT USED FOR UNKNOWN INDICATION
     Dosage: 50 mg, qwk
     Route: 058
  2. METHOTREXATE [Concomitant]
     Dosage: 2.5 mg, UNK
  3. NABUMETONE [Concomitant]
     Dosage: 500 mg, UNK
  4. AMITRIPTYLIN [Concomitant]
     Dosage: 25 mg, UNK
  5. VITAMIN E                          /00110501/ [Concomitant]
     Dosage: 200 IU, UNK
  6. VITAMIN D /00107901/ [Concomitant]
     Dosage: 400 IU, UNK
  7. CALCIUM +D                         /00188401/ [Concomitant]
     Dosage: 500 IU, UNK
  8. VITAMIN B C COMPLEX [Concomitant]
     Dosage: UNK
  9. FOSAMAX [Concomitant]
     Dosage: 10 mg, UNK

REACTIONS (1)
  - Oropharyngeal pain [Recovered/Resolved]
